FAERS Safety Report 7495427-8 (Version None)
Quarter: 2011Q2

REPORT INFORMATION
  Report Type: 
  Country: None (occurrence: None)
  Receive Date: 20110513
  Receipt Date: 20110504
  Transmission Date: 20111010
  Serious: Yes (Other)
  Sender: FDA-Public Use
  Company Number: 2011SP020003

PATIENT
  Sex: Male

DRUGS (2)
  1. PEG-INTRON [Suspect]
     Indication: HEPATITIS C
     Dosage: 100 MCG;QW;SC
     Route: 058
     Dates: start: 20100101
  2. COPEGUS [Suspect]
     Indication: HEPATITIS C
     Dosage: ;PO
     Route: 048
     Dates: start: 20100101

REACTIONS (5)
  - SKIN NECROSIS [None]
  - SKIN LESION [None]
  - PYODERMA [None]
  - PRODUCT CONTAMINATION MICROBIAL [None]
  - INJECTION SITE INFECTION [None]
